FAERS Safety Report 22110131 (Version 2)
Quarter: 2023Q4

REPORT INFORMATION
  Report Type: Report from Study
  Country: CN (occurrence: None)
  Receive Date: 20230317
  Receipt Date: 20231124
  Transmission Date: 20240110
  Serious: Yes (Hospitalization)
  Sender: FDA-Public Use
  Company Number: CN-ROCHE-3309992

PATIENT
  Age: 68 Year
  Sex: Female
  Weight: 56 kg

DRUGS (66)
  1. TRASTUZUMAB [Suspect]
     Active Substance: TRASTUZUMAB
     Indication: Gastric cancer
     Dosage: THE MOST RECENT DOSE OF TRASTUZUMAB PRIOR TO THE EVENT NEUTROPHIL COUNT DECREASED WAS RECEIVED ON 23
     Route: 041
     Dates: start: 20220713
  2. TRASTUZUMAB [Suspect]
     Active Substance: TRASTUZUMAB
     Indication: Oesophageal adenocarcinoma
  3. CAPECITABINE [Suspect]
     Active Substance: CAPECITABINE
     Indication: Gastric cancer
     Dosage: D1-14. THE MOST RECENT DOSE OF CAPECITABINE PRIOR TO THE EVENT WAS RECEIVED ON 09/MAR/2023.
     Route: 048
     Dates: start: 20220713
  4. CAPECITABINE [Suspect]
     Active Substance: CAPECITABINE
     Indication: Oesophageal adenocarcinoma
  5. OXALIPLATIN [Suspect]
     Active Substance: OXALIPLATIN
     Indication: Gastric cancer
     Dosage: THE MOST RECENT DOSE OF OXALIPLATIN PRIOR TO THE EVENT NEUTROPHIL COUNT DECREASED WAS 23/FEB/2023
     Route: 041
     Dates: start: 20220713, end: 20230223
  6. OXALIPLATIN [Suspect]
     Active Substance: OXALIPLATIN
     Indication: Oesophageal adenocarcinoma
  7. PALONOSETRON HYDROCHLORIDE [Concomitant]
     Active Substance: PALONOSETRON HYDROCHLORIDE
     Indication: Prophylaxis
     Route: 042
     Dates: start: 20220713, end: 20220713
  8. PALONOSETRON HYDROCHLORIDE [Concomitant]
     Active Substance: PALONOSETRON HYDROCHLORIDE
     Route: 042
     Dates: start: 20220803, end: 20220803
  9. PALONOSETRON HYDROCHLORIDE [Concomitant]
     Active Substance: PALONOSETRON HYDROCHLORIDE
     Route: 042
     Dates: start: 20220825, end: 20220825
  10. PALONOSETRON HYDROCHLORIDE [Concomitant]
     Active Substance: PALONOSETRON HYDROCHLORIDE
     Route: 042
     Dates: start: 20230131, end: 20230131
  11. PROMETHAZINE HYDROCHLORIDE [Concomitant]
     Active Substance: PROMETHAZINE HYDROCHLORIDE
     Indication: Prophylaxis
     Route: 030
     Dates: start: 20220713, end: 20220713
  12. PROMETHAZINE HYDROCHLORIDE [Concomitant]
     Active Substance: PROMETHAZINE HYDROCHLORIDE
     Route: 030
     Dates: start: 20220803, end: 20220803
  13. PROMETHAZINE HYDROCHLORIDE [Concomitant]
     Active Substance: PROMETHAZINE HYDROCHLORIDE
     Route: 030
     Dates: start: 20220825, end: 20220825
  14. PROMETHAZINE HYDROCHLORIDE [Concomitant]
     Active Substance: PROMETHAZINE HYDROCHLORIDE
     Route: 030
     Dates: start: 20230131, end: 20230131
  15. NIFEDIPINE [Concomitant]
     Active Substance: NIFEDIPINE
     Indication: Neutrophil count decreased
     Route: 048
     Dates: start: 20220713, end: 20220713
  16. DEXAMETHASONE SODIUM PHOSPHATE [Concomitant]
     Active Substance: DEXAMETHASONE PHOSPHATE\DEXAMETHASONE SODIUM PHOSPHATE
     Indication: Neutrophil count decreased
     Route: 042
     Dates: start: 20220713, end: 20220713
  17. DEXAMETHASONE SODIUM PHOSPHATE [Concomitant]
     Active Substance: DEXAMETHASONE PHOSPHATE\DEXAMETHASONE SODIUM PHOSPHATE
     Route: 042
     Dates: start: 20220803, end: 20220803
  18. DEXAMETHASONE SODIUM PHOSPHATE [Concomitant]
     Active Substance: DEXAMETHASONE PHOSPHATE\DEXAMETHASONE SODIUM PHOSPHATE
     Dates: start: 20220825, end: 20220825
  19. DEXAMETHASONE SODIUM PHOSPHATE [Concomitant]
     Active Substance: DEXAMETHASONE PHOSPHATE\DEXAMETHASONE SODIUM PHOSPHATE
     Dates: start: 20230131, end: 20230131
  20. PIOGLITAZONE HYDROCHLORIDE [Concomitant]
     Active Substance: PIOGLITAZONE HYDROCHLORIDE
  21. LEUCOGEN [Concomitant]
     Active Substance: LEUCOGEN
     Dates: start: 20230213
  22. FERRIC POLYSACCHARIDE COMPLEX [Concomitant]
     Active Substance: FERRIC POLYSACCHARIDE COMPLEX
     Dates: start: 20230213
  23. INSULIN NOS [Concomitant]
     Active Substance: INSULIN NOS
  24. PEGYLATED RECOMBINANT HUMAN GRANULOCYTE STIMULATING FACTOR INJECTION ( [Concomitant]
     Route: 058
     Dates: start: 20220805, end: 20220805
  25. CAFFEIC ACID [Concomitant]
     Active Substance: CAFFEIC ACID
     Route: 048
     Dates: start: 20220802, end: 20221006
  26. CAFFEIC ACID [Concomitant]
     Active Substance: CAFFEIC ACID
     Dates: start: 20230314, end: 20230421
  27. CAFFEIC ACID [Concomitant]
     Active Substance: CAFFEIC ACID
     Dates: start: 20230321, end: 20230421
  28. SIMETHICONE (DIMETHICONE) [Concomitant]
     Active Substance: DIMETHICONE
     Route: 048
     Dates: start: 20220926, end: 20220926
  29. BENOXINATE HYDROCHLORIDE [Concomitant]
     Active Substance: BENOXINATE HYDROCHLORIDE
     Dates: start: 20220926, end: 20220926
  30. PROTEASE [Concomitant]
     Active Substance: PROTEASE
     Dates: start: 20220926, end: 20220926
  31. POTASSIUM CHLORIDE [Concomitant]
     Active Substance: POTASSIUM CHLORIDE
     Route: 042
     Dates: start: 20220928, end: 20220928
  32. POTASSIUM CHLORIDE [Concomitant]
     Active Substance: POTASSIUM CHLORIDE
     Route: 042
     Dates: start: 20221009, end: 20221009
  33. POTASSIUM CHLORIDE [Concomitant]
     Active Substance: POTASSIUM CHLORIDE
     Dates: start: 20221008, end: 20221009
  34. INVERT SUGAR [Concomitant]
     Active Substance: INVERT SUGAR
  35. CEFOPERAZONE\TAZOBACTAM SODIUM [Concomitant]
     Active Substance: CEFOPERAZONE\TAZOBACTAM SODIUM
  36. REMIFENTANIL HYDROCHLORIDE [Concomitant]
     Active Substance: REMIFENTANIL HYDROCHLORIDE
     Dates: start: 20221008, end: 20221008
  37. REMIFENTANIL HYDROCHLORIDE [Concomitant]
     Active Substance: REMIFENTANIL HYDROCHLORIDE
     Dates: start: 20221009, end: 20221009
  38. DEXTROSE [Concomitant]
     Active Substance: DEXTROSE\DEXTROSE MONOHYDRATE
  39. ALANYL GLUTAMINE [Concomitant]
     Active Substance: ALANYL GLUTAMINE
  40. CALCIUM GLUCONATE [Concomitant]
     Active Substance: CALCIUM GLUCONATE
  41. COMPOUND MEGLUMINE DIATRIZOATE [Concomitant]
     Route: 042
     Dates: start: 20221012, end: 20221012
  42. FAT SOLUBLE VITAMINS NOS [Concomitant]
  43. STERILE WATER [Concomitant]
     Active Substance: WATER
  44. SODIUM CHLORIDE [Concomitant]
     Active Substance: SODIUM CHLORIDE
  45. MAGNESIUM SULFATE [Concomitant]
     Active Substance: MAGNESIUM SULFATE\MAGNESIUM SULFATE HEPTAHYDRATE
     Route: 042
     Dates: start: 20221009, end: 20221009
  46. MAGNESIUM SULFATE [Concomitant]
     Active Substance: MAGNESIUM SULFATE\MAGNESIUM SULFATE HEPTAHYDRATE
     Dates: start: 20221010, end: 20221013
  47. FAT EMULSION NOS [Concomitant]
     Active Substance: EGG PHOSPHOLIPIDS\SAFFLOWER OIL\SOYBEAN OIL
  48. SUFENTANIL CITRATE [Concomitant]
     Active Substance: SUFENTANIL CITRATE
  49. EPHEDRINE HYDROCHLORIDE [Concomitant]
     Active Substance: EPHEDRINE HYDROCHLORIDE
  50. MORPHINE HYDROCHLORIDE [Concomitant]
     Active Substance: MORPHINE HYDROCHLORIDE
  51. ESOMEPRAZOLE SODIUM [Concomitant]
     Active Substance: ESOMEPRAZOLE SODIUM
  52. AMMONIUM GLYCYRRHIZATE [Concomitant]
     Active Substance: AMMONIUM GLYCYRRHIZATE
  53. AMBROXOL HYDROCHLORIDE [Concomitant]
     Active Substance: AMBROXOL HYDROCHLORIDE
  54. MAGNESIUM ISOGLYCYRRHIZINATE [Concomitant]
     Active Substance: MAGNESIUM ISOGLYCYRRHIZINATE
  55. BECLOMETHASONE DIPROPIONATE [Concomitant]
     Active Substance: BECLOMETHASONE DIPROPIONATE
  56. ACETYLCYSTEINE [Concomitant]
     Active Substance: ACETYLCYSTEINE
  57. OCTREOTIDE ACETATE [Concomitant]
     Active Substance: OCTREOTIDE ACETATE
  58. BEMIPARIN SODIUM [Concomitant]
     Active Substance: BEMIPARIN SODIUM
  59. POTASSIUM ASPARTATE [Concomitant]
     Active Substance: POTASSIUM ASPARTATE
  60. FUROSEMIDE [Concomitant]
     Active Substance: FUROSEMIDE
  61. ANDROGRAPHOLIDE [Concomitant]
     Active Substance: ANDROGRAPHOLIDE
  62. INSULIN HUMAN [Concomitant]
     Active Substance: INSULIN HUMAN
     Dosage: 8-10 IU (INTERNATIONAL?UNIT)
     Dates: start: 20221101
  63. CEFUROXIME AXETIL [Concomitant]
     Active Substance: CEFUROXIME AXETIL
  64. SODIUM BICARBONATE [Concomitant]
     Active Substance: SODIUM BICARBONATE
  65. HUMAN GRANULOCYTE STIMULATING FACTOR NEEDLE (UNK INGREDIENTS) [Concomitant]
     Dates: start: 20230314, end: 20230314
  66. HUMAN GRANULOCYTE STIMULATING FACTOR NEEDLE (UNK INGREDIENTS) [Concomitant]
     Route: 058
     Dates: start: 20220802, end: 20220802

REACTIONS (1)
  - Neutrophil count decreased [Recovered/Resolved]

NARRATIVE: CASE EVENT DATE: 20230311
